FAERS Safety Report 7622695-1 (Version None)
Quarter: 2011Q3

REPORT INFORMATION
  Report Type: 
  Country: None (occurrence: None)
  Receive Date: 20110719
  Receipt Date: 20110719
  Transmission Date: 20111222
  Serious: No
  Sender: FDA-Public Use
  Company Number: None

PATIENT
  Sex: Female

DRUGS (1)
  1. HUMIRA [Suspect]
     Indication: COLITIS ULCERATIVE
     Dosage: 40MG QOW SUBCUTANEOUSLY
     Route: 058
     Dates: start: 20110624

REACTIONS (2)
  - NO THERAPEUTIC RESPONSE [None]
  - ALOPECIA [None]
